FAERS Safety Report 16833008 (Version 1)
Quarter: 2019Q3

REPORT INFORMATION
  Report Type: Spontaneous
  Country: US (occurrence: US)
  Receive Date: 20190731
  Receipt Date: 20190731
  Transmission Date: 20191005
  Serious: Yes (Other)
  Sender: FDA-Public Use
  Company Number: None

PATIENT
  Age: 69 Year
  Sex: Male

DRUGS (19)
  1. APIXABAN [Concomitant]
     Active Substance: APIXABAN
  2. ALBUTEROL HFA [Concomitant]
     Active Substance: ALBUTEROL SULFATE
  3. AMIODARONE [Concomitant]
     Active Substance: AMIODARONE
  4. TORSEMIDE. [Concomitant]
     Active Substance: TORSEMIDE
  5. SILDENAFIL. [Concomitant]
     Active Substance: SILDENAFIL
  6. TYVASO [Concomitant]
     Active Substance: TREPROSTINIL
  7. EPLERENONE. [Concomitant]
     Active Substance: EPLERENONE
  8. TRAZODONE [Concomitant]
     Active Substance: TRAZODONE HYDROCHLORIDE
  9. HYDROCORTISONE TOP CREAM [Concomitant]
  10. NORCO [Concomitant]
     Active Substance: ACETAMINOPHEN\HYDROCODONE BITARTRATE
  11. PANTOPRAZOLE [Concomitant]
     Active Substance: PANTOPRAZOLE
  12. NARCAN [Concomitant]
     Active Substance: NALOXONE HYDROCHLORIDE
  13. GABAPENTIN. [Concomitant]
     Active Substance: GABAPENTIN
  14. LIPITOR [Concomitant]
     Active Substance: ATORVASTATIN CALCIUM
  15. OPSUMIT [Suspect]
     Active Substance: MACITENTAN
     Indication: PULMONARY ARTERIAL HYPERTENSION
     Route: 048
     Dates: start: 201606
  16. ATORVASTATIN [Concomitant]
     Active Substance: ATORVASTATIN
  17. ALLOPURINOL. [Concomitant]
     Active Substance: ALLOPURINOL
  18. ASPIRIN. [Concomitant]
     Active Substance: ASPIRIN
  19. ANUCORT-HC [Concomitant]
     Active Substance: HYDROCORTISONE ACETATE

REACTIONS (7)
  - Diarrhoea [None]
  - Abdominal pain [None]
  - Haemorrhoids [None]
  - Haemoglobin decreased [None]
  - Faeces discoloured [None]
  - Gastroenteritis [None]
  - Dizziness [None]

NARRATIVE: CASE EVENT DATE: 20190726
